FAERS Safety Report 6335452-3 (Version None)
Quarter: 2009Q3

REPORT INFORMATION
  Report Type: 
  Country: None (occurrence: None)
  Receive Date: 20090826
  Receipt Date: 20090813
  Transmission Date: 20100115
  Serious: Yes (Hospitalization)
  Sender: FDA-Public Use
  Company Number: 8050616

PATIENT
  Age: 20 Year
  Sex: Female

DRUGS (5)
  1. LEVETIRACETAM [Suspect]
     Indication: CONVULSION
  2. OXCARBAZEPINE [Suspect]
     Indication: CONVULSION
  3. ZONISAMIDE [Suspect]
     Indication: CONVULSION
  4. PHENOBARBITAL TAB [Suspect]
     Indication: CONVULSION
     Dosage: 150 MG /D
  5. PHENOBARBITAL TAB [Suspect]
     Indication: CONVULSION
     Dosage: 400 MG/D

REACTIONS (6)
  - CEREBRAL ATROPHY [None]
  - DISEASE PROGRESSION [None]
  - ENCEPHALITIS [None]
  - GRAND MAL CONVULSION [None]
  - HEMIPARESIS [None]
  - STATUS EPILEPTICUS [None]
